FAERS Safety Report 5709883-6 (Version None)
Quarter: 2008Q2

REPORT INFORMATION
  Report Type: 
  Country: None (occurrence: None)
  Receive Date: 20080418
  Receipt Date: 20070524
  Transmission Date: 20081010
  Serious: No
  Sender: FDA-Public Use
  Company Number: US-ASTRAZENECA-2007UW12827

PATIENT
  Age: 83 Year
  Sex: Male
  Weight: 72.1 kg

DRUGS (3)
  1. TOPROL-XL [Suspect]
     Indication: ANGINA PECTORIS
     Route: 048
  2. LISINOPRIL [Concomitant]
  3. NORVASC [Concomitant]

REACTIONS (3)
  - FEELING COLD [None]
  - MICTURITION DISORDER [None]
  - PERIPHERAL COLDNESS [None]
